FAERS Safety Report 9463197 (Version 1)
Quarter: 2013Q3

REPORT INFORMATION
  Report Type: Spontaneous
  Country: FR (occurrence: FR)
  Receive Date: 20130818
  Receipt Date: 20130818
  Transmission Date: 20140515
  Serious: Yes (Hospitalization)
  Sender: FDA-Public Use
  Company Number: PHHY2013FR086870

PATIENT
  Age: 56 Year
  Sex: Male

DRUGS (2)
  1. HEPARIN [Suspect]
     Indication: THROMBOSIS IN DEVICE
     Route: 042
     Dates: start: 20110107, end: 20110203
  2. ANTIBACTERIALS FOR SYSTEMIC USE [Concomitant]
     Indication: PNEUMONIA PNEUMOCOCCAL

REACTIONS (5)
  - Monoplegia [Unknown]
  - Pulmonary embolism [Unknown]
  - Heparin-induced thrombocytopenia [Unknown]
  - Thrombosis in device [Unknown]
  - Venous thrombosis [Unknown]
